FAERS Safety Report 5500156-3 (Version None)
Quarter: 2007Q4

REPORT INFORMATION
  Report Type: 
  Country: None (occurrence: None)
  Receive Date: 20071025
  Receipt Date: 20071018
  Transmission Date: 20080405
  Serious: Yes (Other)
  Sender: FDA-Public Use
  Company Number: 2007SP021190

PATIENT
  Sex: Male
  Weight: 48 kg

DRUGS (16)
  1. TEMODAL [Suspect]
     Indication: GLIOBLASTOMA MULTIFORME
     Dosage: 150 MG/M2; QD; PO, 150 MG/M2; QD; PO, 150 MG/M2; QD; PO, 150 MG/M2; QD; PO, 150 MG/M2; QD; PO
     Route: 048
     Dates: start: 20061115, end: 20061119
  2. TEMODAL [Suspect]
     Indication: RECURRENT CANCER
     Dosage: 150 MG/M2; QD; PO, 150 MG/M2; QD; PO, 150 MG/M2; QD; PO, 150 MG/M2; QD; PO, 150 MG/M2; QD; PO
     Route: 048
     Dates: start: 20061115, end: 20061119
  3. TEMODAL [Suspect]
     Indication: GLIOBLASTOMA MULTIFORME
     Dosage: 150 MG/M2; QD; PO, 150 MG/M2; QD; PO, 150 MG/M2; QD; PO, 150 MG/M2; QD; PO, 150 MG/M2; QD; PO
     Route: 048
     Dates: start: 20061212, end: 20061216
  4. TEMODAL [Suspect]
     Indication: RECURRENT CANCER
     Dosage: 150 MG/M2; QD; PO, 150 MG/M2; QD; PO, 150 MG/M2; QD; PO, 150 MG/M2; QD; PO, 150 MG/M2; QD; PO
     Route: 048
     Dates: start: 20061212, end: 20061216
  5. TEMODAL [Suspect]
     Indication: GLIOBLASTOMA MULTIFORME
     Dosage: 150 MG/M2; QD; PO, 150 MG/M2; QD; PO, 150 MG/M2; QD; PO, 150 MG/M2; QD; PO, 150 MG/M2; QD; PO
     Route: 048
     Dates: start: 20070131, end: 20070204
  6. TEMODAL [Suspect]
     Indication: RECURRENT CANCER
     Dosage: 150 MG/M2; QD; PO, 150 MG/M2; QD; PO, 150 MG/M2; QD; PO, 150 MG/M2; QD; PO, 150 MG/M2; QD; PO
     Route: 048
     Dates: start: 20070131, end: 20070204
  7. TEMODAL [Suspect]
     Indication: GLIOBLASTOMA MULTIFORME
     Dosage: 150 MG/M2; QD; PO, 150 MG/M2; QD; PO, 150 MG/M2; QD; PO, 150 MG/M2; QD; PO, 150 MG/M2; QD; PO
     Route: 048
     Dates: start: 20070328, end: 20070401
  8. TEMODAL [Suspect]
     Indication: RECURRENT CANCER
     Dosage: 150 MG/M2; QD; PO, 150 MG/M2; QD; PO, 150 MG/M2; QD; PO, 150 MG/M2; QD; PO, 150 MG/M2; QD; PO
     Route: 048
     Dates: start: 20070328, end: 20070401
  9. TEMODAL [Suspect]
     Indication: GLIOBLASTOMA MULTIFORME
     Dosage: 150 MG/M2; QD; PO, 150 MG/M2; QD; PO, 150 MG/M2; QD; PO, 150 MG/M2; QD; PO, 150 MG/M2; QD; PO
     Route: 048
     Dates: start: 20070616, end: 20070620
  10. TEMODAL [Suspect]
     Indication: RECURRENT CANCER
     Dosage: 150 MG/M2; QD; PO, 150 MG/M2; QD; PO, 150 MG/M2; QD; PO, 150 MG/M2; QD; PO, 150 MG/M2; QD; PO
     Route: 048
     Dates: start: 20070616, end: 20070620
  11. BAKTAR [Concomitant]
  12. FAMOTIDINE [Concomitant]
  13. CEPHADOL [Concomitant]
  14. NAUZELIN [Concomitant]
  15. DECADRON [Concomitant]
  16. MAGNESIUM OXIDE [Concomitant]

REACTIONS (3)
  - ALANINE AMINOTRANSFERASE INCREASED [None]
  - ASPARTATE AMINOTRANSFERASE INCREASED [None]
  - WHITE BLOOD CELL COUNT DECREASED [None]
